FAERS Safety Report 8482821-1 (Version None)
Quarter: 2012Q3

REPORT INFORMATION
  Report Type: 
  Country: None (occurrence: None)
  Receive Date: 20120702
  Receipt Date: 20120625
  Transmission Date: 20120928
  Serious: Yes (Other)
  Sender: FDA-Public Use
  Company Number: US-UCBSA-016214

PATIENT
  Age: 24 Hour
  Sex: Female
  Weight: 3.1 kg

DRUGS (5)
  1. FOLIC ACID [Concomitant]
     Indication: PREGNANCY
     Route: 064
  2. MULTI-VITAMINS [Concomitant]
     Indication: PREGNANCY
     Route: 064
  3. KEPPRA XR [Suspect]
     Route: 064
     Dates: start: 20091101, end: 20100531
  4. FERROUS SULFATE TAB [Concomitant]
     Indication: BLOOD IRON DECREASED
     Route: 064
     Dates: start: 20091106
  5. KEPPRA [Suspect]
     Indication: EPILEPSY
     Dosage: 1000 DAILY DOSE
     Route: 064
     Dates: end: 20091101

REACTIONS (4)
  - JAUNDICE [None]
  - BRADYCARDIA FOETAL [None]
  - FOETAL EXPOSURE DURING PREGNANCY [None]
  - HAEMANGIOMA [None]
